FAERS Safety Report 14679342 (Version 2)
Quarter: 2018Q2

REPORT INFORMATION
  Report Type: Spontaneous
  Country: US (occurrence: US)
  Receive Date: 20180326
  Receipt Date: 20180424
  Transmission Date: 20180711
  Serious: No
  Sender: FDA-Public Use
  Company Number: US-PFIZER INC-2018122943

PATIENT
  Age: 78 Year
  Sex: Female
  Weight: 99.77 kg

DRUGS (1)
  1. IBRANCE [Suspect]
     Active Substance: PALBOCICLIB
     Indication: BREAST CANCER METASTATIC
     Dosage: 125 MG, CYCLIC [D 1-21 Q 28 DAYS]
     Route: 048
     Dates: start: 20180301

REACTIONS (3)
  - Musculoskeletal stiffness [Recovering/Resolving]
  - Bone pain [Recovering/Resolving]
  - Back pain [Recovering/Resolving]
